FAERS Safety Report 6526347-0 (Version None)
Quarter: 2010Q1

REPORT INFORMATION
  Report Type: 
  Country: None (occurrence: None)
  Receive Date: 20100105
  Receipt Date: 20091222
  Transmission Date: 20100710
  Serious: Yes (Hospitalization)
  Sender: FDA-Public Use
  Company Number: JP-BIOGENIDEC-2009BI042234

PATIENT
  Age: 30 Year
  Sex: Female

DRUGS (18)
  1. AVONEX [Suspect]
     Indication: RELAPSING-REMITTING MULTIPLE SCLEROSIS
     Route: 030
     Dates: start: 20090209
  2. LIPIDIL [Concomitant]
     Dates: start: 20090209, end: 20090726
  3. PAXIL [Concomitant]
     Dates: start: 20090209, end: 20090726
  4. AMOBAN [Concomitant]
     Dates: start: 20090209, end: 20090726
  5. PARIET [Concomitant]
     Dates: start: 20090209, end: 20090726
  6. BONALON [Concomitant]
     Dates: start: 20090209, end: 20090216
  7. BONALON [Concomitant]
     Dates: start: 20090406, end: 20090412
  8. BONALON [Concomitant]
     Dates: start: 20090525, end: 20090602
  9. DEPAS [Concomitant]
     Dates: start: 20090209, end: 20090726
  10. MAGNESIUM OXIDE [Concomitant]
     Dates: start: 20090209, end: 20090726
  11. PANTOSIN [Concomitant]
     Dates: start: 20090209, end: 20090726
  12. DAI-KENCHU-TO [Concomitant]
     Dates: start: 20090209, end: 20090726
  13. RELENZA [Concomitant]
     Dates: start: 20090217, end: 20090217
  14. LOXONIN [Concomitant]
     Dates: start: 20090209, end: 20090209
  15. LOXONIN [Concomitant]
     Dates: start: 20090406, end: 20090406
  16. LOXONIN [Concomitant]
     Dates: start: 20090525, end: 20090525
  17. PRIMPERAN TAB [Concomitant]
     Dates: start: 20090501
  18. GOREISAN [Concomitant]
     Dates: start: 20090501

REACTIONS (1)
  - PULMONARY INFARCTION [None]
